FAERS Safety Report 4399822-5 (Version None)
Quarter: 2004Q3

REPORT INFORMATION
  Report Type: 
  Country: None (occurrence: None)
  Receive Date: 20040714
  Receipt Date: 20040702
  Transmission Date: 20050211
  Serious: Yes (Other)
  Sender: FDA-Public Use
  Company Number: 2004044459

PATIENT
  Age: 43 Year
  Sex: Female
  Weight: 60 kg

DRUGS (1)
  1. CETIRIZINE / PSEUDOEPHEDRINE [Suspect]
     Indication: SEASONAL ALLERGY
     Dosage: UNKNOWN (1 IN 1 D), ORAL
     Route: 048
     Dates: start: 20040420, end: 20040428

REACTIONS (1)
  - STEVENS-JOHNSON SYNDROME [None]
